FAERS Safety Report 21648193 (Version 1)
Quarter: 2022Q4

REPORT INFORMATION
  Report Type: Report from Study
  Country: US (occurrence: PR)
  Receive Date: 20221128
  Receipt Date: 20221128
  Transmission Date: 20230112
  Serious: No
  Sender: FDA-Public Use
  Company Number: PR-ABBVIE-4180646

PATIENT
  Sex: Female
  Weight: 76.657 kg

DRUGS (4)
  1. RINVOQ [Suspect]
     Active Substance: UPADACITINIB
     Indication: Dermatitis atopic
     Dosage: FORM STRENGTH : 15 MG
     Route: 048
     Dates: start: 20221003
  2. ELASOMERAN [Concomitant]
     Active Substance: ELASOMERAN
     Indication: COVID-19
     Dosage: 1 IN 1 ONCE (3RD DOSE)
     Route: 030
     Dates: start: 20211119, end: 20211119
  3. ELASOMERAN [Concomitant]
     Active Substance: ELASOMERAN
     Indication: COVID-19
     Dosage: 1 IN 1 ONCE (2ND DOSE)
     Route: 030
     Dates: start: 20210414, end: 20210414
  4. ELASOMERAN [Concomitant]
     Active Substance: ELASOMERAN
     Indication: COVID-19
     Dosage: 1 IN 1 ONCE (1ST DOSE)
     Route: 030
     Dates: start: 20210317, end: 20210317

REACTIONS (1)
  - Dizziness [Unknown]

NARRATIVE: CASE EVENT DATE: 20221001
